FAERS Safety Report 16933721 (Version 1)
Quarter: 2019Q4

REPORT INFORMATION
  Report Type: Report from Study
  Country: None (occurrence: CO)
  Receive Date: 20191018
  Receipt Date: 20191018
  Transmission Date: 20200122
  Serious: Yes (Death, Hospitalization)
  Sender: FDA-Public Use
  Company Number: CO-ABBVIE-19K-036-2969280-00

PATIENT
  Age: 76 Year
  Sex: Male

DRUGS (1)
  1. ZEMPLAR [Suspect]
     Active Substance: PARICALCITOL
     Indication: HYPERPARATHYROIDISM SECONDARY
     Dosage: POST DIALYSIS
     Route: 042
     Dates: start: 20190610, end: 20191002

REACTIONS (2)
  - Cardio-respiratory arrest [Fatal]
  - Dialysis related complication [Fatal]

NARRATIVE: CASE EVENT DATE: 20191002
